FAERS Safety Report 22048994 (Version 1)
Quarter: 2023Q1

REPORT INFORMATION
  Report Type: Spontaneous
  Country: US (occurrence: US)
  Receive Date: 20230301
  Receipt Date: 20230301
  Transmission Date: 20230418
  Serious: No
  Sender: FDA-Public Use
  Company Number: US-PFIZER INC-202300083246

PATIENT
  Age: 44 Year
  Sex: Female

DRUGS (4)
  1. PAXLOVID [Suspect]
     Active Substance: NIRMATRELVIR\RITONAVIR
     Indication: COVID-19 treatment
     Dosage: 300 MG
     Dates: start: 20230223
  2. GABAPENTIN [Concomitant]
     Active Substance: GABAPENTIN
  3. LAMOTRIGINE [Concomitant]
     Active Substance: LAMOTRIGINE
  4. ESCITALOPRAM [Concomitant]
     Active Substance: ESCITALOPRAM OXALATE

REACTIONS (4)
  - Taste disorder [Unknown]
  - Diarrhoea [Unknown]
  - Myalgia [Unknown]
  - Tendonitis [Unknown]

NARRATIVE: CASE EVENT DATE: 20230223
